FAERS Safety Report 10766167 (Version 2)
Quarter: 2015Q1

REPORT INFORMATION
  Report Type: Report from Study
  Country: EG (occurrence: EG)
  Receive Date: 20150205
  Receipt Date: 20150223
  Transmission Date: 20150721
  Serious: Yes (Death)
  Sender: FDA-Public Use
  Company Number: EG-SA-2015SA013036

PATIENT
  Age: 64 Year
  Sex: Female

DRUGS (4)
  1. GALVUS [Concomitant]
     Active Substance: VILDAGLIPTIN
  2. LANOXIN [Concomitant]
     Active Substance: DIGOXIN
  3. DIAMICRON [Concomitant]
     Active Substance: GLICLAZIDE
  4. LANTUS [Suspect]
     Active Substance: INSULIN GLARGINE
     Indication: TYPE 2 DIABETES MELLITUS
     Route: 058
     Dates: start: 20140823

REACTIONS (2)
  - Cardiac failure acute [Fatal]
  - Angina pectoris [Fatal]

NARRATIVE: CASE EVENT DATE: 20141129
